FAERS Safety Report 5280229-3 (Version None)
Quarter: 2007Q1

REPORT INFORMATION
  Report Type: 
  Country: None (occurrence: None)
  Receive Date: 20070329
  Receipt Date: 20070320
  Transmission Date: 20070707
  Serious: Yes (Other)
  Sender: FDA-Public Use
  Company Number: PHEH2007US03333

PATIENT
  Age: 66 Year
  Sex: Female

DRUGS (2)
  1. ZOMETA [Suspect]
     Indication: BREAST CANCER METASTATIC
     Dosage: 4 MG MONTHLY
     Route: 042
     Dates: start: 20050925, end: 20061220
  2. FASLODEX [Concomitant]
     Dosage: UNK, QMO

REACTIONS (3)
  - ABSCESS JAW [None]
  - OSTEONECROSIS [None]
  - TOOTH ABSCESS [None]
